FAERS Safety Report 5180970-7 (Version None)
Quarter: 2006Q4

REPORT INFORMATION
  Report Type: 
  Country: None (occurrence: None)
  Receive Date: 20061214
  Receipt Date: 20061214
  Transmission Date: 20070319
  Serious: Yes (Hospitalization)
  Sender: FDA-Public Use
  Company Number: None

PATIENT
  Age: 67 Year
  Sex: Male

DRUGS (2)
  1. PACLITAXEL [Suspect]
     Indication: LUNG NEOPLASM MALIGNANT
     Dosage: 150MG/M2 X 1 IV
     Route: 042
     Dates: start: 20061011
  2. CARBOPLATIN [Suspect]
     Indication: LUNG NEOPLASM MALIGNANT
     Dosage: 577 MG X 1 IV
     Route: 042
     Dates: start: 20061011

REACTIONS (4)
  - COLITIS [None]
  - CONFUSIONAL STATE [None]
  - DIARRHOEA [None]
  - ISCHAEMIA [None]
